FAERS Safety Report 12723957 (Version 1)
Quarter: 2016Q3

REPORT INFORMATION
  Report Type: Spontaneous
  Country: None (occurrence: None)
  Receive Date: 20160907
  Receipt Date: 20160907
  Transmission Date: 20161109
  Serious: Yes (Hospitalization)
  Sender: FDA-Public Use
  Company Number: US-ALSI-201600231

PATIENT
  Age: 72 Year
  Sex: Male

DRUGS (1)
  1. NITROUS OXIDE (MEDICINAL) (NITROUS OXIDE) [Suspect]
     Active Substance: NITROUS OXIDE
     Indication: ANALGESIC THERAPY
     Route: 055

REACTIONS (3)
  - Gastrointestinal injury [None]
  - Delusional perception [None]
  - Limb injury [None]
